FAERS Safety Report 13276534 (Version 1)
Quarter: 2017Q1

REPORT INFORMATION
  Report Type: Spontaneous
  Country: DK (occurrence: DK)
  Receive Date: 20170228
  Receipt Date: 20170228
  Transmission Date: 20170428
  Serious: Yes (Other)
  Sender: FDA-Public Use
  Company Number: DK-TEVA-742015ACC

PATIENT
  Age: 64 Year
  Sex: Female

DRUGS (9)
  1. CALCIUM FOLINATE [Concomitant]
     Active Substance: LEUCOVORIN CALCIUM
     Dosage: 1500 MILLIGRAM DAILY;
     Route: 065
     Dates: start: 20170113
  2. MAGNESIUM HYDROXIDE. [Concomitant]
     Active Substance: MAGNESIUM HYDROXIDE
     Route: 065
     Dates: start: 20161214
  3. PIPERACILLIN OG TAZOBACTAM [Concomitant]
     Dosage: 12 GRAM DAILY;
     Route: 065
     Dates: start: 20170113
  4. CARBOPLATIN. [Suspect]
     Active Substance: CARBOPLATIN
     Indication: MALIGNANT PERITONEAL NEOPLASM
     Route: 065
     Dates: start: 20161101
  5. PARACETAMOL [Concomitant]
     Active Substance: ACETAMINOPHEN
     Route: 065
     Dates: start: 20170113
  6. CODEINE PHOSPHATE [Concomitant]
     Active Substance: CODEINE PHOSPHATE
     Route: 065
     Dates: start: 20161222
  7. LOSARTAN. [Concomitant]
     Active Substance: LOSARTAN
     Route: 065
     Dates: start: 20161214
  8. CAELYX [Suspect]
     Active Substance: DOXORUBICIN HYDROCHLORIDE
     Indication: MALIGNANT PERITONEAL NEOPLASM
     Route: 065
     Dates: start: 20161101
  9. PANTOPRAZOLE SODIUM SESQUIHYDRATE [Concomitant]
     Active Substance: PANTOPRAZOLE SODIUM
     Route: 065
     Dates: start: 20170114

REACTIONS (4)
  - Acute myeloid leukaemia [Not Recovered/Not Resolved]
  - Off label use [Unknown]
  - Thrombocytopenia [Unknown]
  - Product use issue [Unknown]

NARRATIVE: CASE EVENT DATE: 20170112
